FAERS Safety Report 21274485 (Version 1)
Quarter: 2022Q3

REPORT INFORMATION
  Report Type: Spontaneous
  Country: US (occurrence: None)
  Receive Date: 20220830
  Receipt Date: 20220830
  Transmission Date: 20221027
  Serious: No
  Sender: FDA-Public Use
  Company Number: None

PATIENT
  Age: 74 Year
  Sex: Male
  Weight: 77.88 kg

DRUGS (7)
  1. ERLEADA [Suspect]
     Active Substance: APALUTAMIDE
     Indication: Prostate cancer
     Dosage: FREQUENCY : DAILY;?
     Route: 048
     Dates: start: 202207
  2. AMLODIPINE BESYLATE [Concomitant]
  3. FLONASE ALLERGY [Concomitant]
  4. LUPRON [Concomitant]
  5. METOPROLOL [Concomitant]
  6. SUCCINATE [Concomitant]
  7. ROSUVASTATIN CALCIUM [Concomitant]

REACTIONS (1)
  - Prostatic specific antigen increased [None]
